FAERS Safety Report 24524263 (Version 3)
Quarter: 2025Q3

REPORT INFORMATION
  Report Type: Report from Study
  Country: CA (occurrence: CA)
  Receive Date: 20241018
  Receipt Date: 20250810
  Transmission Date: 20251020
  Serious: Yes (Hospitalization, Other)
  Sender: ALEXION PHARMACEUTICALS
  Company Number: CA-AstraZeneca-CH-00724763A

PATIENT
  Age: 47 Year
  Sex: Male

DRUGS (4)
  1. ULTOMIRIS [Suspect]
     Active Substance: RAVULIZUMAB-CWVZ
     Indication: Atypical haemolytic uraemic syndrome
     Dates: start: 20240802, end: 20240802
  2. ULTOMIRIS [Suspect]
     Active Substance: RAVULIZUMAB-CWVZ
  3. ULTOMIRIS [Suspect]
     Active Substance: RAVULIZUMAB-CWVZ
     Dosage: 3300 MILLIGRAM, Q8W
     Dates: start: 20241017
  4. PENICILLIN V [Concomitant]
     Active Substance: PENICILLIN V
     Indication: Prophylaxis
     Route: 065

REACTIONS (14)
  - Pancreatic carcinoma [Unknown]
  - Blood bicarbonate decreased [Unknown]
  - Hypoalbuminaemia [Unknown]
  - Alanine aminotransferase increased [Unknown]
  - Haemoglobin decreased [Unknown]
  - Red blood cell count decreased [Unknown]
  - Haematocrit decreased [Unknown]
  - Platelet count decreased [Unknown]
  - Mean platelet volume decreased [Unknown]
  - Monocyte count increased [Unknown]
  - Lymphocyte count decreased [Unknown]
  - Prothrombin time prolonged [Unknown]
  - Serum ferritin increased [Unknown]
  - Haptoglobin increased [Unknown]

NARRATIVE: CASE EVENT DATE: 20241121
